FAERS Safety Report 15061332 (Version 2)
Quarter: 2018Q3

REPORT INFORMATION
  Report Type: Spontaneous
  Country: AR (occurrence: AR)
  Receive Date: 20180625
  Receipt Date: 20180719
  Transmission Date: 20181010
  Serious: Yes (Other)
  Sender: FDA-Public Use
  Company Number: AR-ACTELION-A-CH2018-174120

PATIENT
  Age: 30 Year
  Sex: Male

DRUGS (3)
  1. ZAVESCA [Suspect]
     Active Substance: MIGLUSTAT
     Indication: NIEMANN-PICK DISEASE
     Dosage: 100 MG, QD
     Route: 048
     Dates: start: 201506
  2. ZAVESCA [Suspect]
     Active Substance: MIGLUSTAT
     Dosage: 5 TBS, QD
     Route: 048
  3. ZAVESCA [Suspect]
     Active Substance: MIGLUSTAT
     Dosage: UNK
     Route: 048

REACTIONS (14)
  - Fall [Unknown]
  - Nasal congestion [Unknown]
  - Abnormal faeces [Unknown]
  - Pallor [Not Recovered/Not Resolved]
  - Pyrexia [Unknown]
  - Poor quality sleep [Unknown]
  - Impaired quality of life [Unknown]
  - Pulse absent [Not Recovered/Not Resolved]
  - General physical health deterioration [Unknown]
  - Gait disturbance [Recovering/Resolving]
  - Gastrointestinal disorder [Unknown]
  - Diarrhoea [Not Recovered/Not Resolved]
  - Agitation [Unknown]
  - Treatment noncompliance [Unknown]

NARRATIVE: CASE EVENT DATE: 201807
